FAERS Safety Report 9225225 (Version 1)
Quarter: 2013Q2

REPORT INFORMATION
  Report Type: Spontaneous
  Country: US (occurrence: None)
  Receive Date: 20130410
  Receipt Date: 20130410
  Transmission Date: 20140414
  Serious: Yes (Other)
  Sender: FDA-Public Use
  Company Number: None

PATIENT
  Age: 25 Year
  Sex: Female

DRUGS (1)
  1. ANTABUSE [Suspect]
     Route: 048
     Dates: start: 19990101, end: 19991231

REACTIONS (4)
  - Erythema [None]
  - Anxiety [None]
  - Menorrhagia [None]
  - Polymenorrhoea [None]
